FAERS Safety Report 7397857-1 (Version None)
Quarter: 2011Q2

REPORT INFORMATION
  Report Type: 
  Country: None (occurrence: None)
  Receive Date: 20110406
  Receipt Date: 20110330
  Transmission Date: 20111010
  Serious: Yes (Death, Hospitalization, Other)
  Sender: FDA-Public Use
  Company Number: JP-PFIZER INC-2011068805

PATIENT
  Age: 67 Year
  Sex: Female

DRUGS (4)
  1. MEVALOTIN [Concomitant]
     Indication: DYSLIPIDAEMIA
     Dosage: 10MG DAILY
     Route: 048
     Dates: start: 20100520, end: 20110329
  2. NORVASC [Suspect]
     Indication: HYPERTENSION
     Dosage: 10MG DAILY
     Route: 048
     Dates: start: 20100322, end: 20110322
  3. LANTUS [Concomitant]
     Indication: BLOOD GLUCOSE ABNORMAL
     Dosage: 10 IU, 1X/DAY
     Route: 058
     Dates: start: 20100520, end: 20110329
  4. ALLELOCK [Concomitant]
     Indication: HYPERSENSITIVITY
     Dosage: 5MG DAILY
     Route: 048
     Dates: start: 20101220, end: 20110305

REACTIONS (3)
  - BRADYCARDIA [None]
  - VENTRICULAR FIBRILLATION [None]
  - HYPOTENSION [None]
